FAERS Safety Report 4383741-4 (Version None)
Quarter: 2004Q2

REPORT INFORMATION
  Report Type: 
  Country: None (occurrence: None)
  Receive Date: 20040608
  Receipt Date: 20030715
  Transmission Date: 20050107
  Serious: Yes (Other)
  Sender: FDA-Public Use
  Company Number: 200312440BCC

PATIENT
  Age: 65 Year
  Sex: Female
  Weight: 81.6475 kg

DRUGS (1)
  1. ALEVE [Suspect]
     Indication: ARTHRALGIA
     Dosage: 440 MG, TIW, ORAL
     Route: 048
     Dates: start: 20021101, end: 20030101

REACTIONS (2)
  - STOMACH DISCOMFORT [None]
  - ULCER HAEMORRHAGE [None]
